FAERS Safety Report 7978961-3 (Version None)
Quarter: 2011Q4

REPORT INFORMATION
  Report Type: 
  Country: None (occurrence: None)
  Receive Date: 20111202
  Receipt Date: 20111117
  Transmission Date: 20120403
  Serious: Yes (Hospitalization)
  Sender: FDA-Public Use
  Company Number: 2011SP050176

PATIENT
  Age: 65 Year
  Sex: Male

DRUGS (25)
  1. ACETAMINOPHEN [Concomitant]
  2. VITAMIN C [Concomitant]
  3. KEPPRA [Concomitant]
  4. VICODIN [Concomitant]
  5. TEMODAR [Suspect]
     Indication: GLIOBLASTOMA MULTIFORME
     Dosage: 75 MG/M2;QD;IV  : 150 MG/M2;QD;IV
     Route: 042
     Dates: start: 20110823, end: 20110827
  6. TEMODAR [Suspect]
     Indication: GLIOBLASTOMA MULTIFORME
     Dosage: 75 MG/M2;QD;IV  : 150 MG/M2;QD;IV
     Route: 042
     Dates: start: 20110606, end: 20110718
  7. MULTI-VITAMIN [Concomitant]
  8. VITAMIN B COMPLEX CAP [Concomitant]
  9. FLOMAX [Concomitant]
  10. FISH OIL [Concomitant]
  11. NEXIUM [Concomitant]
  12. TEMODAR [Suspect]
     Indication: GLIOBLASTOMA MULTIFORME
     Dosage: 100 MG/M2;QD;PO
     Route: 048
     Dates: start: 20110927, end: 20111002
  13. TEMODAR [Suspect]
     Indication: GLIOBLASTOMA MULTIFORME
     Dosage: 100 MG/M2;QD;PO
     Route: 048
     Dates: start: 20111027, end: 20111031
  14. ATORVASTATIN CALCIUM [Concomitant]
  15. GLUCOSAMINE [Concomitant]
  16. LIPITOR [Concomitant]
  17. HYDROXIZINE [Concomitant]
  18. DEXAMETHASONE [Concomitant]
  19. ESOMEPRAZOLE MAGNESIUM [Concomitant]
  20. LEVETIRACETAM [Concomitant]
  21. HYDROCODONE BITARTRATE [Concomitant]
  22. TAMSULOSIN HCL [Concomitant]
  23. VITAMIN C [Concomitant]
  24. SULFAMETHOXAZOLE AND TRIMETHOPRIM [Concomitant]
  25. ACETAMINOPHEN [Concomitant]

REACTIONS (5)
  - SYNCOPE [None]
  - PULMONARY EMBOLISM [None]
  - PULMONARY THROMBOSIS [None]
  - FALL [None]
  - ATELECTASIS [None]
